FAERS Safety Report 22081423 (Version 2)
Quarter: 2023Q1

REPORT INFORMATION
  Report Type: Spontaneous
  Country: US (occurrence: US)
  Receive Date: 20230309
  Receipt Date: 20230329
  Transmission Date: 20230418
  Serious: Yes (Hospitalization, Other)
  Sender: FDA-Public Use
  Company Number: US-ALVOGEN-2023089339

PATIENT
  Sex: Male
  Weight: 144.21 kg

DRUGS (2)
  1. LISINOPRIL [Suspect]
     Active Substance: LISINOPRIL
     Indication: Product used for unknown indication
  2. XTANDI [Suspect]
     Active Substance: ENZALUTAMIDE
     Indication: Prostate cancer
     Dates: start: 2015

REACTIONS (5)
  - Loss of consciousness [Unknown]
  - Femur fracture [Unknown]
  - Blood pressure decreased [Unknown]
  - Headache [Unknown]
  - Dizziness [Unknown]
